FAERS Safety Report 11849850 (Version 2)
Quarter: 2016Q1

REPORT INFORMATION
  Report Type: Spontaneous
  Country: JP (occurrence: JP)
  Receive Date: 20151218
  Receipt Date: 20160112
  Transmission Date: 20160526
  Serious: Yes (Death, Other)
  Sender: FDA-Public Use
  Company Number: JP-VIIV HEALTHCARE LIMITED-JP2015JPN178291

PATIENT
  Age: 36 Year
  Sex: Male

DRUGS (5)
  1. REFLEX [Concomitant]
     Active Substance: MIRTAZAPINE
     Dosage: 45 MG, UNK
     Dates: start: 20141208
  2. TRUVADA [Concomitant]
     Active Substance: EMTRICITABINE\TENOFOVIR DISOPROXIL FUMARATE
     Indication: HIV INFECTION
     Dosage: UNK
  3. REFLEX [Concomitant]
     Active Substance: MIRTAZAPINE
     Indication: DEPRESSED MOOD
     Dosage: 15 MG, UNK
     Dates: start: 20141127
  4. TIVICAY [Suspect]
     Active Substance: DOLUTEGRAVIR SODIUM
     Indication: HIV INFECTION
     Dosage: UNK
     Route: 048
     Dates: start: 20140626
  5. ROHYPNOL [Concomitant]
     Active Substance: FLUNITRAZEPAM
     Indication: INSOMNIA
     Dosage: 2 DF, PRN

REACTIONS (2)
  - Completed suicide [Fatal]
  - Psychiatric symptom [Unknown]

NARRATIVE: CASE EVENT DATE: 20150603
